FAERS Safety Report 7178206-0 (Version None)
Quarter: 2010Q4

REPORT INFORMATION
  Report Type: 
  Country: None (occurrence: None)
  Receive Date: 20101220
  Receipt Date: 20090314
  Transmission Date: 20110411
  Serious: Yes (Other)
  Sender: FDA-Public Use
  Company Number: CHPA2009US06927

PATIENT
  Age: 60 Year
  Sex: Female
  Weight: 82.54 kg

DRUGS (1)
  1. THERAPEUTIC MINERAL ICE (NCH) [Suspect]
     Indication: BACK PAIN
     Dosage: UNK, ONCE A DAY
     Route: 061
     Dates: start: 20090311, end: 20090313

REACTIONS (5)
  - LIP SWELLING [None]
  - OEDEMA PERIPHERAL [None]
  - PRURITUS GENERALISED [None]
  - RASH PAPULAR [None]
  - SWELLING FACE [None]
